FAERS Safety Report 5221820-X (Version None)
Quarter: 2007Q1

REPORT INFORMATION
  Report Type: 
  Country: None (occurrence: None)
  Receive Date: 20070125
  Receipt Date: 20070125
  Transmission Date: 20070707
  Serious: Yes (Other)
  Sender: FDA-Public Use
  Company Number: None

PATIENT
  Age: 61 Year
  Sex: Male

DRUGS (4)
  1. REVLIMID [Suspect]
     Indication: MULTIPLE MYELOMA
     Dosage: 25MG DAILY 21D/28D PO
     Route: 048
  2. METHOCARBAMOL [Concomitant]
  3. ACETAMINOPHEN AND OXYCODONE HCL [Concomitant]
  4. VICODIN [Concomitant]

REACTIONS (1)
  - NEUTROPENIA [None]
